FAERS Safety Report 6256664-3 (Version None)
Quarter: 2009Q3

REPORT INFORMATION
  Report Type: 
  Country: None (occurrence: None)
  Receive Date: 20090706
  Receipt Date: 20081001
  Transmission Date: 20100115
  Serious: No
  Sender: FDA-Public Use
  Company Number: US-BAYER-200834763NA

PATIENT
  Age: 65 Year
  Sex: Male

DRUGS (1)
  1. CAMPATH [Suspect]
     Indication: DRUG USE FOR UNKNOWN INDICATION
     Dosage: AS USED: 30 MG
     Route: 042
     Dates: start: 20080929

REACTIONS (1)
  - ADVERSE EVENT [None]
